FAERS Safety Report 4551117-2 (Version None)
Quarter: 2005Q1

REPORT INFORMATION
  Report Type: 
  Country: None (occurrence: None)
  Receive Date: 20050107
  Receipt Date: 20041222
  Transmission Date: 20050727
  Serious: Yes (Other)
  Sender: FDA-Public Use
  Company Number: 195251

PATIENT
  Age: 61 Year
  Sex: Female

DRUGS (8)
  1. AVONEX [Suspect]
     Indication: MULTIPLE SCLEROSIS
     Dosage: 30 UG; QW; IM
     Route: 030
     Dates: start: 20010827, end: 20031101
  2. AVONEX [Suspect]
     Indication: MULTIPLE SCLEROSIS
     Dosage: 30 UG; QW; IM
     Route: 030
     Dates: start: 20031101
  3. ZANTAC [Concomitant]
  4. AMANTADINE [Concomitant]
  5. ATENOLOL [Concomitant]
  6. ALBUTAMOL INH [Concomitant]
  7. CETIRIZINE [Concomitant]
  8. PREMPRO [Concomitant]

REACTIONS (2)
  - BREAST CANCER FEMALE [None]
  - BREAST MICROCALCIFICATION [None]
